FAERS Safety Report 8198377-7 (Version None)
Quarter: 2012Q1

REPORT INFORMATION
  Report Type: 
  Country: None (occurrence: None)
  Receive Date: 20120309
  Receipt Date: 20120104
  Transmission Date: 20120608
  Serious: No
  Sender: FDA-Public Use
  Company Number: US-AMGEN-USASP2012000389

PATIENT
  Age: 76 Year
  Sex: Female

DRUGS (13)
  1. CALCIUM WITH VITAMIN D [Concomitant]
     Dosage: 1500 MG, QD
  2. EXTRA STRENGTH TYLENOL [Concomitant]
     Dosage: UNK, QD
  3. STOOL SOFTENER [Concomitant]
     Dosage: UNK UNK, QD
  4. ASPIRIN [Concomitant]
     Dosage: 1 MG, QD
  5. OXYGEN [Concomitant]
  6. LOSARTAN/HCTZ GT [Concomitant]
     Dosage: UNK UNK, QD
  7. PRILOSEC [Concomitant]
     Indication: DYSPEPSIA
  8. SPIRIVA [Concomitant]
     Dosage: UNK UNK, QD
  9. ATROVENT HFA [Concomitant]
     Dosage: UNK, QD
  10. PROLIA [Suspect]
     Indication: OSTEOPOROSIS POSTMENOPAUSAL
     Dosage: 60 MG, Q6MO
     Dates: start: 20111201
  11. CLONIDINE [Concomitant]
     Dosage: UNK, QD
  12. PRAVASTATIN [Concomitant]
     Dosage: UNK, QD
  13. ADVAIR DISKUS 100/50 [Concomitant]
     Dosage: UNK UNK, QD

REACTIONS (4)
  - BACK PAIN [None]
  - BONE PAIN [None]
  - PAIN IN EXTREMITY [None]
  - ARTHRALGIA [None]
